FAERS Safety Report 4854304-9 (Version None)
Quarter: 2005Q4

REPORT INFORMATION
  Report Type: 
  Country: None (occurrence: None)
  Receive Date: 20051213
  Receipt Date: 20051213
  Transmission Date: 20060501
  Serious: No
  Sender: FDA-Public Use
  Company Number: None

PATIENT
  Age: 54 Year
  Sex: Male
  Weight: 88.905 kg

DRUGS (19)
  1. EZETIMIBE   10 MG [Suspect]
     Indication: HYPERLIPIDAEMIA
     Dosage: 10 MG DAILY PO
     Route: 048
     Dates: start: 20030618, end: 20030828
  2. ABSORBASE [Concomitant]
  3. ACETAMINOPHEN [Concomitant]
  4. ALBUTEROL SULFATE AND IPRATROPIUM BROMIDE [Concomitant]
  5. ASPIRIN [Concomitant]
  6. BACITRACIN ZINC-POLYMYXIN B SULFATE [Concomitant]
  7. CLOTRIMAZOLE [Concomitant]
  8. LANOXIN [Concomitant]
  9. FUROSEMIDE [Concomitant]
  10. HYDRALAZINE HCL [Concomitant]
  11. ISOSORBIDE DINITRATE [Concomitant]
  12. LISINOPRIL [Concomitant]
  13. METOPROLOL TARTRATE [Concomitant]
  14. NITROGLYCERIN [Concomitant]
  15. RABEPRAZOLE SODIUM [Concomitant]
  16. SIMETHICONE [Concomitant]
  17. SIMVASTATIN [Concomitant]
  18. TRIAMCINOLONE [Concomitant]
  19. TRIAMCINOLONE ACETONIDE [Concomitant]

REACTIONS (3)
  - ABDOMINAL PAIN [None]
  - FLATULENCE [None]
  - HEADACHE [None]
